FAERS Safety Report 13292482 (Version 1)
Quarter: 2017Q1

REPORT INFORMATION
  Report Type: Spontaneous
  Country: NL (occurrence: NL)
  Receive Date: 20170303
  Receipt Date: 20170303
  Transmission Date: 20170428
  Serious: Yes (Other)
  Sender: FDA-Public Use
  Company Number: NL-JNJFOC-20170300442

PATIENT
  Sex: Male

DRUGS (3)
  1. METHOTREXATE. [Suspect]
     Active Substance: METHOTREXATE
     Indication: PRODUCT USED FOR UNKNOWN INDICATION
     Route: 065
     Dates: end: 2016
  2. SIMPONI [Suspect]
     Active Substance: GOLIMUMAB
     Indication: PRODUCT USED FOR UNKNOWN INDICATION
     Dosage: SINCE 2010 OR 2011
     Route: 058
     Dates: start: 201701
  3. SIMPONI [Suspect]
     Active Substance: GOLIMUMAB
     Indication: PRODUCT USED FOR UNKNOWN INDICATION
     Dosage: SINCE 2010 OR 2011
     Route: 058
     Dates: end: 2016

REACTIONS (3)
  - Neuralgia [Unknown]
  - Cranial nerve paralysis [Recovered/Resolved]
  - Optic nerve disorder [Unknown]

NARRATIVE: CASE EVENT DATE: 2016
